FAERS Safety Report 7897049-3 (Version None)
Quarter: 2011Q4

REPORT INFORMATION
  Report Type: 
  Country: None (occurrence: None)
  Receive Date: 20111107
  Receipt Date: 20111027
  Transmission Date: 20120403
  Serious: Yes (Other)
  Sender: FDA-Public Use
  Company Number: CA-JNJFOC-20111013481

PATIENT
  Sex: Female
  Weight: 53.7 kg

DRUGS (3)
  1. ASACOL [Concomitant]
     Route: 065
  2. REMICADE [Suspect]
     Indication: CROHN'S DISEASE
     Route: 042
  3. ALESSE [Concomitant]
     Route: 065

REACTIONS (1)
  - DIARRHOEA HAEMORRHAGIC [None]
